FAERS Safety Report 14903602 (Version 1)
Quarter: 2018Q2

REPORT INFORMATION
  Report Type: Spontaneous
  Country: US (occurrence: US)
  Receive Date: 20180516
  Receipt Date: 20180516
  Transmission Date: 20180711
  Serious: Yes (Other)
  Sender: FDA-Public Use
  Company Number: US-SUNOVION-2018SUN001927

PATIENT
  Sex: Female

DRUGS (6)
  1. TROKENDI [Concomitant]
     Active Substance: TOPIRAMATE
     Indication: HEADACHE
  2. TROKENDI [Concomitant]
     Active Substance: TOPIRAMATE
     Indication: SEIZURE
     Dosage: UNK
  3. APTIOM [Suspect]
     Active Substance: ESLICARBAZEPINE ACETATE
     Indication: PRODUCT USED FOR UNKNOWN INDICATION
     Dosage: 400 MG, UNK
     Route: 048
     Dates: start: 201711
  4. ZONEGRAN [Concomitant]
     Active Substance: ZONISAMIDE
  5. APTIOM [Suspect]
     Active Substance: ESLICARBAZEPINE ACETATE
     Dosage: 600 MG, UNK
     Route: 048
     Dates: start: 2017
  6. APTIOM [Suspect]
     Active Substance: ESLICARBAZEPINE ACETATE
     Dosage: 800 MG, UNK
     Route: 048
     Dates: end: 201801

REACTIONS (1)
  - Seizure cluster [Not Recovered/Not Resolved]

NARRATIVE: CASE EVENT DATE: 201801
